FAERS Safety Report 10903457 (Version 1)
Quarter: 2015Q1

REPORT INFORMATION
  Report Type: Spontaneous
  Country: US (occurrence: None)
  Receive Date: 20150304
  Receipt Date: 20150304
  Transmission Date: 20150721
  Serious: Yes (Hospitalization, Other)
  Sender: FDA-Public Use
  Company Number: ADR-2015-00425

PATIENT
  Age: 45 Year
  Sex: Female

DRUGS (4)
  1. DILAUDID [Suspect]
     Active Substance: HYDROMORPHONE HYDROCHLORIDE
  2. BACLOFEN INTRATHECAL 200 MCG/ML [Suspect]
     Active Substance: BACLOFEN
     Indication: MUSCLE SPASTICITY
  3. FENTANYL INTRATHECAL [Suspect]
     Active Substance: FENTANYL
     Indication: MUSCLE SPASTICITY
  4. BUPIVACAINE INTRATHECAL [Suspect]
     Active Substance: BUPIVACAINE

REACTIONS (10)
  - Fall [None]
  - Hallucination [None]
  - Nausea [None]
  - Hypoaesthesia [None]
  - Seizure [None]
  - Drug withdrawal syndrome [None]
  - Abdominal discomfort [None]
  - Pain [None]
  - Emotional distress [None]
  - Hyperhidrosis [None]
